FAERS Safety Report 11080228 (Version 1)
Quarter: 2015Q2

REPORT INFORMATION
  Report Type: Spontaneous
  Country: US (occurrence: US)
  Receive Date: 20150430
  Receipt Date: 20150430
  Transmission Date: 20150821
  Serious: Yes (Other)
  Sender: FDA-Public Use
  Company Number: US-LUNDBECK-DKLU1111806

PATIENT
  Age: 75 Year
  Sex: Female

DRUGS (1)
  1. NORTHERA [Suspect]
     Active Substance: DROXIDOPA
     Indication: PRODUCT USED FOR UNKNOWN INDICATION
     Route: 065

REACTIONS (5)
  - Activities of daily living impaired [Unknown]
  - Drug dose omission [Unknown]
  - Somnolence [Unknown]
  - Chest pain [Unknown]
  - Malaise [Unknown]

NARRATIVE: CASE EVENT DATE: 20150422
